FAERS Safety Report 25577031 (Version 3)
Quarter: 2025Q3

REPORT INFORMATION
  Report Type: Spontaneous
  Country: US (occurrence: US)
  Receive Date: 20250718
  Receipt Date: 20250828
  Transmission Date: 20251021
  Serious: Yes (Hospitalization, Other)
  Sender: pharmaAND
  Company Number: US-Pharmaand-2025000882

PATIENT
  Age: 68 Year
  Sex: Female

DRUGS (3)
  1. RUBRACA [Suspect]
     Active Substance: RUCAPARIB CAMSYLATE
     Dosage: TWO TABLETS TWICE DAILY
     Route: 048
     Dates: start: 20250626, end: 2025
  2. RUBRACA [Suspect]
     Active Substance: RUCAPARIB CAMSYLATE
     Dosage: 200 MG BID
     Route: 048
     Dates: start: 2025, end: 2025
  3. AVASTIN [Suspect]
     Active Substance: BEVACIZUMAB

REACTIONS (2)
  - Renal failure [Unknown]
  - Thrombotic microangiopathy [Unknown]
